FAERS Safety Report 5443598-7 (Version None)
Quarter: 2007Q3

REPORT INFORMATION
  Report Type: 
  Country: None (occurrence: None)
  Receive Date: 20070730
  Receipt Date: 20070222
  Transmission Date: 20080115
  Serious: Yes (Hospitalization)
  Sender: FDA-Public Use
  Company Number: 236052

PATIENT
  Age: 84 Year
  Sex: Female

DRUGS (3)
  1. RITUXAN [Suspect]
     Indication: MANTLE CELL LYMPHOMA
     Dosage: 125 MG/M2, TID
     Dates: start: 20070203
  2. DECADRON [Concomitant]
  3. CYTOXAN [Concomitant]

REACTIONS (2)
  - FLUID OVERLOAD [None]
  - SYNCOPE VASOVAGAL [None]
